FAERS Safety Report 24721147 (Version 1)
Quarter: 2024Q4

REPORT INFORMATION
  Report Type: Spontaneous
  Country: US (occurrence: None)
  Receive Date: 20241210
  Receipt Date: 20241210
  Transmission Date: 20250115
  Serious: Yes (Other)
  Sender: Public
  Company Number: None

PATIENT
  Age: 55 Year
  Sex: Female

DRUGS (1)
  1. DALFAMPRIDINE [Suspect]
     Active Substance: DALFAMPRIDINE
     Indication: Multiple sclerosis
     Dates: start: 20230713

REACTIONS (5)
  - Multiple sclerosis relapse [None]
  - Multiple sclerosis [None]
  - Drug ineffective [None]
  - Urinary tract infection [None]
  - Status epilepticus [None]

NARRATIVE: CASE EVENT DATE: 20241210
